FAERS Safety Report 8853054 (Version 1)
Quarter: 2012Q4

REPORT INFORMATION
  Report Type: 
  Country: US (occurrence: US)
  Receive Date: 20121022
  Receipt Date: 20121022
  Transmission Date: 20130627
  Serious: Yes (Hospitalization, Other)
  Sender: FDA-Public Use
  Company Number: US-ROCHE-1103448

PATIENT
  Sex: Female

DRUGS (17)
  1. AVASTIN [Suspect]
     Indication: BREAST CANCER FEMALE
     Route: 065
     Dates: start: 20060213, end: 20060627
  2. HERCEPTIN [Suspect]
     Indication: BREAST CANCER FEMALE
     Route: 065
  3. TAXOL [Concomitant]
     Route: 065
     Dates: start: 20060213
  4. PROZAC [Concomitant]
     Route: 048
  5. XANAX [Concomitant]
     Route: 048
  6. NEXIUM [Concomitant]
     Route: 048
  7. LORAZEPAM [Concomitant]
     Route: 048
  8. WELLBUTRIN SR [Concomitant]
     Route: 048
  9. CELEBREX [Concomitant]
     Route: 048
  10. MEGACE SUSPENSION [Concomitant]
     Route: 048
  11. TRAMADOL [Concomitant]
     Route: 048
  12. FENTANYL PATCH [Concomitant]
  13. DIFLUCAN [Concomitant]
     Route: 048
  14. PREDNISONE [Concomitant]
     Dosage: every morning with food
     Route: 065
  15. ZOMETA [Concomitant]
  16. NAVELBINE [Concomitant]
     Route: 065
     Dates: start: 20070417
  17. LAPATINIB [Concomitant]
     Route: 065
     Dates: start: 20070417

REACTIONS (13)
  - Mucosal inflammation [Unknown]
  - Nausea [Unknown]
  - Vomiting [Unknown]
  - Dyspnoea [Unknown]
  - Chest pain [Unknown]
  - White blood cell count increased [Unknown]
  - Hypoxia [Unknown]
  - Pulmonary oedema [Unknown]
  - Pneumonitis [Unknown]
  - Stomatitis [Unknown]
  - Pyrexia [Unknown]
  - Disease progression [Unknown]
  - Oral candidiasis [Unknown]
